FAERS Safety Report 7679994-7 (Version None)
Quarter: 2011Q3

REPORT INFORMATION
  Report Type: 
  Country: None (occurrence: None)
  Receive Date: 20110812
  Receipt Date: 20110801
  Transmission Date: 20111222
  Serious: Yes (Hospitalization)
  Sender: FDA-Public Use
  Company Number: US-JNJFOC-20100707906

PATIENT
  Sex: Female
  Weight: 61.2 kg

DRUGS (2)
  1. INFLIXIMAB, RECOMBINANT [Suspect]
     Indication: CROHN'S DISEASE
     Route: 042
     Dates: start: 20100602
  2. INFLIXIMAB, RECOMBINANT [Suspect]
     Dosage: 2ND INFUSION
     Route: 042
     Dates: start: 20100618

REACTIONS (1)
  - ILEAL STENOSIS [None]
